FAERS Safety Report 5772570-2 (Version None)
Quarter: 2008Q2

REPORT INFORMATION
  Report Type: 
  Country: None (occurrence: None)
  Receive Date: 20080613
  Receipt Date: 20080604
  Transmission Date: 20081010
  Serious: Yes (Other)
  Sender: FDA-Public Use
  Company Number: US-AMGEN-US284716

PATIENT
  Sex: Female

DRUGS (11)
  1. EPOGEN [Suspect]
     Indication: DIALYSIS
     Route: 058
     Dates: start: 20070523
  2. LANSOPRAZOLE [Concomitant]
  3. ENALAPRIL MALEATE [Concomitant]
  4. AMLODIPINE [Concomitant]
  5. CALCITRIOL [Concomitant]
  6. IRON [Concomitant]
  7. SODIUM PHOSPHATE (32 P) [Concomitant]
  8. VITAMIN CAP [Concomitant]
  9. KAYEXALATE [Concomitant]
  10. BACTRIM [Concomitant]
  11. LACTOBACILLUS ACIDOPHILUS [Concomitant]

REACTIONS (2)
  - HAEMOGLOBIN DECREASED [None]
  - INFECTION [None]
